FAERS Safety Report 5459968-7 (Version None)
Quarter: 2007Q3

REPORT INFORMATION
  Report Type: 
  Country: None (occurrence: None)
  Receive Date: 20070919
  Receipt Date: 20070502
  Transmission Date: 20080115
  Serious: Yes (Other)
  Sender: FDA-Public Use
  Company Number: US-ASTRAZENECA-2007UW09707

PATIENT
  Age: 14136 Day
  Sex: Male

DRUGS (10)
  1. SEROQUEL [Suspect]
     Indication: BIPOLAR DISORDER
     Route: 048
     Dates: start: 19971216, end: 19981028
  2. SEROQUEL [Suspect]
     Indication: DEPRESSION
     Route: 048
     Dates: start: 19971216, end: 19981028
  3. SEROQUEL [Suspect]
     Indication: SCHIZOPHRENIA
     Route: 048
     Dates: start: 19971216, end: 19981028
  4. SEROQUEL [Suspect]
     Route: 048
     Dates: start: 20020604, end: 20020804
  5. SEROQUEL [Suspect]
     Route: 048
     Dates: start: 20020604, end: 20020804
  6. SEROQUEL [Suspect]
     Route: 048
     Dates: start: 20020604, end: 20020804
  7. ZYPREXA [Suspect]
     Indication: BIPOLAR DISORDER
     Route: 048
     Dates: start: 19970402, end: 20010305
  8. ZYPREXA [Suspect]
     Indication: DEPRESSION
     Route: 048
     Dates: start: 19970402, end: 20010305
  9. ZYPREXA [Suspect]
     Indication: SCHIZOPHRENIA
     Route: 048
     Dates: start: 19970402, end: 20010305
  10. RISPERDAL [Concomitant]
     Route: 048
     Dates: start: 20040101

REACTIONS (3)
  - PANCREATITIS ACUTE [None]
  - PANCREATITIS CHRONIC [None]
  - TYPE 2 DIABETES MELLITUS [None]
